FAERS Safety Report 14206692 (Version 1)
Quarter: 2017Q4

REPORT INFORMATION
  Report Type: Spontaneous
  Country: US (occurrence: US)
  Receive Date: 20171121
  Receipt Date: 20171121
  Transmission Date: 20180321
  Serious: Yes (Other)
  Sender: FDA-Public Use
  Company Number: US-ROCHE-2025864

PATIENT
  Sex: Female

DRUGS (1)
  1. RITUXAN [Suspect]
     Active Substance: RITUXIMAB
     Indication: COLD TYPE HAEMOLYTIC ANAEMIA
     Route: 065

REACTIONS (5)
  - Traumatic lung injury [Unknown]
  - Intentional product use issue [Unknown]
  - Off label use [Unknown]
  - Respiratory failure [Unknown]
  - Atypical pneumonia [Unknown]
